FAERS Safety Report 8238537-X (Version None)
Quarter: 2012Q1

REPORT INFORMATION
  Report Type: 
  Country: None (occurrence: None)
  Receive Date: 20120327
  Receipt Date: 20120321
  Transmission Date: 20120608
  Serious: Yes (Other)
  Sender: FDA-Public Use
  Company Number: US-US-EMD SERONO, INC.-7121100

PATIENT
  Sex: Female

DRUGS (3)
  1. STEROIDS [Suspect]
     Indication: MULTIPLE SCLEROSIS RELAPSE
  2. UNSPECIFIED MEDICATION [Concomitant]
     Indication: TYPE 2 DIABETES MELLITUS
  3. REBIF [Suspect]
     Indication: MULTIPLE SCLEROSIS
     Route: 058
     Dates: start: 20111222

REACTIONS (3)
  - INJECTION SITE ERYTHEMA [None]
  - MULTIPLE SCLEROSIS RELAPSE [None]
  - BLOOD GLUCOSE INCREASED [None]
